FAERS Safety Report 7104854-X (Version None)
Quarter: 2010Q4

REPORT INFORMATION
  Report Type: 
  Country: None (occurrence: None)
  Receive Date: 20101116
  Receipt Date: 20090720
  Transmission Date: 20110411
  Serious: Yes (Hospitalization, Other)
  Sender: FDA-Public Use
  Company Number: US-ASTRAZENECA-2007UW14097

PATIENT
  Age: 10446 Day
  Sex: Female
  Weight: 75.6 kg

DRUGS (48)
  1. SEROQUEL [Suspect]
     Indication: SLEEP DISORDER
     Dosage: 25-1000 MG
     Route: 048
     Dates: start: 20030620, end: 20061228
  2. SEROQUEL [Suspect]
     Indication: SCHIZOAFFECTIVE DISORDER
     Dosage: 25-1000 MG
     Route: 048
     Dates: start: 20030620, end: 20061228
  3. SEROQUEL [Suspect]
     Indication: PSYCHOTIC DISORDER
     Dosage: 25-1000 MG
     Route: 048
     Dates: start: 20030620, end: 20061228
  4. SEROQUEL [Suspect]
     Indication: SEDATION
     Dosage: 25-1000 MG
     Route: 048
     Dates: start: 20030620, end: 20061228
  5. SEROQUEL [Suspect]
     Indication: AGITATION
     Dosage: 25-1000 MG
     Route: 048
     Dates: start: 20030620, end: 20061228
  6. SEROQUEL [Suspect]
     Route: 048
     Dates: start: 20040723, end: 20061121
  7. SEROQUEL [Suspect]
     Route: 048
     Dates: start: 20040723, end: 20061121
  8. SEROQUEL [Suspect]
     Route: 048
     Dates: start: 20040723, end: 20061121
  9. SEROQUEL [Suspect]
     Route: 048
     Dates: start: 20040723, end: 20061121
  10. SEROQUEL [Suspect]
     Route: 048
     Dates: start: 20040723, end: 20061121
  11. RISPERDAL [Concomitant]
  12. ZYPREXA [Concomitant]
     Indication: ANXIETY
     Dosage: 5MG-15MG
     Dates: start: 20011031
  13. ZYPREXA [Concomitant]
     Indication: HALLUCINATION, AUDITORY
     Dosage: 5MG-15MG
     Dates: start: 20011031
  14. ABILIFY [Concomitant]
     Dosage: 15 MG TO 30 MG
     Dates: start: 20070611, end: 20071004
  15. HALDOL [Concomitant]
     Dates: start: 20060101
  16. THORAZINE [Concomitant]
     Indication: SCHIZOAFFECTIVE DISORDER
     Route: 048
  17. PROZAC [Concomitant]
     Dates: start: 20011030
  18. PROZAC [Concomitant]
     Dosage: 60 MG TO 80 MG
     Dates: start: 20040403
  19. TRAZODONE [Concomitant]
     Route: 048
  20. DOSTINEX [Concomitant]
     Route: 048
  21. MIRTAZAPINE [Concomitant]
     Route: 048
  22. LEVOTHYROXINE [Concomitant]
     Route: 048
  23. INDOMETHACIN [Concomitant]
     Route: 048
  24. ALBUTEROL [Concomitant]
     Route: 048
  25. FOLTX [Concomitant]
     Route: 048
  26. FENTANYL [Concomitant]
     Route: 048
  27. CONCERTA [Concomitant]
     Dosage: 36 - 54 MG
     Route: 048
  28. ONDANSETRON HCL [Concomitant]
     Route: 048
  29. NEURONTIN [Concomitant]
     Route: 048
  30. ATENOLOL [Concomitant]
     Route: 048
  31. VALIUM [Concomitant]
     Route: 048
  32. ZOCOR [Concomitant]
     Route: 048
  33. NITROGLYCERIN [Concomitant]
     Indication: CHEST PAIN
     Dosage: STRENGTH 0.4 MG EVERY 5 MIN. UPTO THREE TIMES
     Route: 060
  34. MOTRIN [Concomitant]
     Route: 048
  35. CLINDAMYCIN [Concomitant]
     Route: 048
  36. OXYCODONE HCL AND ACETAMINOPHEN [Concomitant]
     Dosage: 5/325 MG TWO TABLETS THREE TIMES A DAY
     Route: 048
  37. ACIPHEX [Concomitant]
     Route: 048
  38. WELLBUTRIN [Concomitant]
     Route: 048
  39. PRILOSEC [Concomitant]
     Route: 048
  40. PAXIL [Concomitant]
     Route: 048
  41. NEXIUM [Concomitant]
     Indication: DYSPEPSIA
     Route: 048
  42. XANAX [Concomitant]
     Indication: ANXIETY
     Route: 048
  43. ULTRAM [Concomitant]
     Indication: PAIN
     Route: 048
  44. CYMBALTA [Concomitant]
     Route: 048
  45. COLACE [Concomitant]
     Route: 048
  46. REGLAN [Concomitant]
  47. FLEXERIL [Concomitant]
  48. NAPROSYN [Concomitant]

REACTIONS (11)
  - BLOOD CHOLESTEROL INCREASED [None]
  - DIABETES MELLITUS [None]
  - DIZZINESS [None]
  - EXTRAPYRAMIDAL DISORDER [None]
  - GLYCOSURIA [None]
  - HYPERGLYCAEMIA [None]
  - INTENTIONAL OVERDOSE [None]
  - NEUROPATHY PERIPHERAL [None]
  - POSTURAL ORTHOSTATIC TACHYCARDIA SYNDROME [None]
  - TREMOR [None]
  - TYPE 2 DIABETES MELLITUS [None]
